FAERS Safety Report 21059584 (Version 3)
Quarter: 2022Q3

REPORT INFORMATION
  Report Type: Spontaneous
  Country: US (occurrence: US)
  Receive Date: 20220708
  Receipt Date: 20220831
  Transmission Date: 20221027
  Serious: No
  Sender: FDA-Public Use
  Company Number: US-PFIZER INC-202200935486

PATIENT
  Sex: Male

DRUGS (1)
  1. NARDIL [Suspect]
     Active Substance: PHENELZINE SULFATE
     Indication: Depression
     Dosage: UNK

REACTIONS (4)
  - Drug ineffective [Unknown]
  - Poor quality product administered [Unknown]
  - Product taste abnormal [Unknown]
  - Product odour abnormal [Unknown]
